FAERS Safety Report 24110430 (Version 1)
Quarter: 2024Q3

REPORT INFORMATION
  Report Type: Spontaneous
  Country: CN (occurrence: CN)
  Receive Date: 20240718
  Receipt Date: 20240718
  Transmission Date: 20241017
  Serious: Yes (Other)
  Sender: FRESENIUS KABI
  Company Number: CN-FreseniusKabi-FK202410964

PATIENT
  Age: 62 Year
  Sex: Male
  Weight: 59 kg

DRUGS (1)
  1. LACTULOSE [Suspect]
     Active Substance: LACTULOSE
     Indication: Faecal disimpaction
     Dosage: FORM OF ADMIN-ORAL SOLUTION
     Route: 048
     Dates: start: 20240704, end: 20240708

REACTIONS (2)
  - Diarrhoea [Recovering/Resolving]
  - Gastrointestinal sounds abnormal [Recovered/Resolved]

NARRATIVE: CASE EVENT DATE: 20240705
